FAERS Safety Report 11202861 (Version 1)
Quarter: 2015Q2

REPORT INFORMATION
  Report Type: Spontaneous
  Country: US (occurrence: US)
  Receive Date: 20150619
  Receipt Date: 20150619
  Transmission Date: 20150821
  Serious: No
  Sender: FDA-Public Use
  Company Number: US-MYLANLABS-2014S1010501

PATIENT
  Sex: Female

DRUGS (1)
  1. CYCLOBENZAPRINE HYDROCHLORIDE TABLETS, USP [Suspect]
     Active Substance: CYCLOBENZAPRINE
     Dosage: 10 MG,PRN
     Route: 048

REACTIONS (1)
  - False positive investigation result [Not Recovered/Not Resolved]

NARRATIVE: CASE EVENT DATE: 20140501
